FAERS Safety Report 19952885 (Version 1)
Quarter: 2021Q4

REPORT INFORMATION
  Report Type: Spontaneous
  Country: US (occurrence: US)
  Receive Date: 20211013
  Receipt Date: 20211013
  Transmission Date: 20220303
  Serious: Yes (Other)
  Sender: FDA-Public Use
  Company Number: None

PATIENT
  Age: 29 Year
  Sex: Male

DRUGS (2)
  1. BAMLANIVIMAB [Suspect]
     Active Substance: BAMLANIVIMAB
     Indication: COVID-19
     Dosage: ?          OTHER FREQUENCY:ONCE;
     Route: 041
  2. ETESEVIMAB [Suspect]
     Active Substance: ETESEVIMAB
     Indication: COVID-19 treatment
     Dosage: ?          OTHER FREQUENCY:ONCE;
     Route: 041

REACTIONS (9)
  - Infusion related reaction [None]
  - Headache [None]
  - Dyspnoea [None]
  - Back pain [None]
  - Chest discomfort [None]
  - Pain [None]
  - Flushing [None]
  - Ocular hyperaemia [None]
  - Cough [None]

NARRATIVE: CASE EVENT DATE: 20211008
